FAERS Safety Report 7678218-4 (Version None)
Quarter: 2011Q3

REPORT INFORMATION
  Report Type: 
  Country: None (occurrence: None)
  Receive Date: 20110811
  Receipt Date: 20110801
  Transmission Date: 20111222
  Serious: Yes (Other)
  Sender: FDA-Public Use
  Company Number: BR-ELI_LILLY_AND_COMPANY-BR201108000650

PATIENT
  Sex: Female

DRUGS (2)
  1. BYETTA [Suspect]
     Dosage: 5 UG, UNKNOWN
     Route: 065
  2. METFORMIN HCL [Concomitant]

REACTIONS (6)
  - DYSPNOEA [None]
  - BLOOD GLUCOSE ABNORMAL [None]
  - MUCOSAL DISCOLOURATION [None]
  - SYNCOPE [None]
  - TREMOR [None]
  - FEELING ABNORMAL [None]
